FAERS Safety Report 10798031 (Version 1)
Quarter: 2015Q1

REPORT INFORMATION
  Report Type: Spontaneous
  Country: US (occurrence: US)
  Receive Date: 20150216
  Receipt Date: 20150216
  Transmission Date: 20150721
  Serious: No
  Sender: FDA-Public Use
  Company Number: US-PFIZER INC-2015055479

PATIENT
  Age: 67 Year
  Sex: Female

DRUGS (5)
  1. PREMARIN [Suspect]
     Active Substance: ESTROGENS, CONJUGATED
     Indication: VULVOVAGINAL DRYNESS
     Dosage: UNK, DAILY
     Route: 067
     Dates: start: 201401
  2. SODIUM CHLORIDE. [Concomitant]
     Active Substance: SODIUM CHLORIDE
     Indication: ENDODONTIC PROCEDURE
     Route: 045
  3. AUGMENTIN [Concomitant]
     Active Substance: AMOXICILLIN\CLAVULANATE POTASSIUM
     Indication: ENDODONTIC PROCEDURE
     Dosage: UNK
     Dates: start: 20150106
  4. VAGIFEM [Suspect]
     Active Substance: ESTRADIOL
  5. NASOCORT [Concomitant]
     Active Substance: TRIAMCINOLONE ACETONIDE
     Indication: ENDODONTIC PROCEDURE
     Route: 045

REACTIONS (6)
  - Tooth disorder [Unknown]
  - Headache [Unknown]
  - Lymphadenopathy [Unknown]
  - Nasal disorder [Unknown]
  - Nasal congestion [Unknown]
  - Blood calcium increased [Not Recovered/Not Resolved]

NARRATIVE: CASE EVENT DATE: 2015
